FAERS Safety Report 4976049-7 (Version None)
Quarter: 2006Q2

REPORT INFORMATION
  Report Type: 
  Country: None (occurrence: None)
  Receive Date: 20060412
  Receipt Date: 20060404
  Transmission Date: 20061013
  Serious: Yes (Other)
  Sender: FDA-Public Use
  Company Number: OMPQ-NO-0604L-0217

PATIENT
  Age: 3 Month
  Sex: Male

DRUGS (2)
  1. OMNIPAQUE 140 [Suspect]
     Indication: URETHRAL VALVES
     Dosage: URINARY TRACT
  2. POVIDONE IODINE [Concomitant]

REACTIONS (4)
  - CONTRAST MEDIA REACTION [None]
  - JAUNDICE NEONATAL [None]
  - RENAL TRANSPLANT [None]
  - SECONDARY HYPOTHYROIDISM [None]
